FAERS Safety Report 5644687-4 (Version None)
Quarter: 2008Q1

REPORT INFORMATION
  Report Type: 
  Country: None (occurrence: None)
  Receive Date: 20080229
  Receipt Date: 20070522
  Transmission Date: 20080703
  Serious: No
  Sender: FDA-Public Use
  Company Number: A0652960A

PATIENT
  Sex: Female

DRUGS (1)
  1. VALTREX [Suspect]
     Indication: IMMUNOSUPPRESSANT DRUG THERAPY
     Route: 048

REACTIONS (1)
  - THERAPEUTIC RESPONSE DECREASED [None]
